FAERS Safety Report 10953810 (Version 1)
Quarter: 2015Q1

REPORT INFORMATION
  Report Type: Spontaneous
  Country: HR (occurrence: HR)
  Receive Date: 20150325
  Receipt Date: 20150325
  Transmission Date: 20150721
  Serious: Yes (Other)
  Sender: FDA-Public Use
  Company Number: HR-TEVA-548622ISR

PATIENT
  Age: 58 Year
  Sex: Female
  Weight: 130 kg

DRUGS (8)
  1. SPIRIVA 18 MIKROGRAMA, PRASAK ZA INHAL [Concomitant]
     Dosage: CAPSULES, OTHER
     Route: 055
  2. ZIPANTOLA [Concomitant]
     Route: 048
  3. KALIJEV KLORID BELUPO [Concomitant]
     Dosage: TABLETS, SOLUBLE
     Route: 048
  4. PROTECTA [Concomitant]
     Route: 048
  5. VENTOLIN [Suspect]
     Active Substance: ALBUTEROL SULFATE
     Indication: ASTHMA
     Dosage: 800 MICROGRAM DAILY; PRESSURISED AEROSOLS, METERED DOSE
     Route: 055
     Dates: start: 20150203
  6. EUTHYROX [Concomitant]
     Active Substance: LEVOTHYROXINE SODIUM
     Route: 048
  7. SYMBICORT TURBUHALER 320/9 MICROG [Concomitant]
     Dosage: POWDERS, UNIT DOSE; 1 DF = 320 MCG BUDESONIDE + 9 MCG FORMOTEROL
     Route: 055
  8. LORISTA H [Concomitant]
     Route: 048

REACTIONS (3)
  - Erythema [Recovered/Resolved]
  - Generalised erythema [Recovered/Resolved]
  - Pruritus generalised [Recovered/Resolved]

NARRATIVE: CASE EVENT DATE: 20150203
